FAERS Safety Report 7944201-4 (Version None)
Quarter: 2011Q4

REPORT INFORMATION
  Report Type: 
  Country: None (occurrence: None)
  Receive Date: 20111129
  Receipt Date: 20111116
  Transmission Date: 20120403
  Serious: Yes (Hospitalization)
  Sender: FDA-Public Use
  Company Number: US-BIOGENIDEC-2011BI044189

PATIENT
  Sex: Male

DRUGS (1)
  1. TYSABRI [Suspect]
     Indication: MULTIPLE SCLEROSIS
     Route: 064
     Dates: start: 20100811

REACTIONS (4)
  - DYSPNOEA [None]
  - LUNG DISORDER [None]
  - PREMATURE BABY [None]
  - JAUNDICE [None]
